FAERS Safety Report 6738531-1 (Version None)
Quarter: 2010Q2

REPORT INFORMATION
  Report Type: 
  Country: None (occurrence: None)
  Receive Date: 20100520
  Receipt Date: 20100510
  Transmission Date: 20101027
  Serious: Yes (Hospitalization)
  Sender: FDA-Public Use
  Company Number: TPA2010A02770

PATIENT
  Age: 67 Year
  Sex: Female
  Weight: 127.0072 kg

DRUGS (4)
  1. ACTOS [Suspect]
     Indication: DIABETES MELLITUS
     Dosage: PER ORAL
     Dates: start: 20090101
  2. METFORMIN HCL [Concomitant]
  3. LISINOPRIL [Concomitant]
  4. METOPROLOL (METOPROLOL) [Concomitant]

REACTIONS (3)
  - CHEST DISCOMFORT [None]
  - DYSPNOEA [None]
  - TREATMENT NONCOMPLIANCE [None]
